FAERS Safety Report 7657778-3 (Version None)
Quarter: 2011Q3

REPORT INFORMATION
  Report Type: 
  Country: None (occurrence: None)
  Receive Date: 20110805
  Receipt Date: 20110705
  Transmission Date: 20111222
  Serious: Yes (Hospitalization, Disabling, Other)
  Sender: FDA-Public Use
  Company Number: HU-BIOGENIDEC-2011BI023398

PATIENT
  Age: 53 Year
  Sex: Female

DRUGS (6)
  1. CITAPRAM [Concomitant]
     Indication: DEPRESSION
     Dates: start: 20080101
  2. IRON SUPPLEMENTATION [Concomitant]
     Indication: IRON DEFICIENCY
  3. XANAX [Concomitant]
     Indication: ANXIETY
     Dates: start: 20070101
  4. MEFORAL [Concomitant]
     Indication: DIABETES MELLITUS
     Dates: start: 20110120
  5. TYSABRI [Suspect]
     Indication: MULTIPLE SCLEROSIS
     Route: 042
     Dates: start: 20090924, end: 20110222
  6. BACLOFEN [Concomitant]
     Indication: MUSCLE SPASMS
     Dates: start: 20060101

REACTIONS (9)
  - ANAEMIA OF MALIGNANT DISEASE [None]
  - ASTHENIA [None]
  - DEEP VEIN THROMBOSIS [None]
  - CONDITION AGGRAVATED [None]
  - COLORECTAL CANCER [None]
  - ABASIA [None]
  - ANAEMIA [None]
  - PARAPARESIS [None]
  - ANAEMIA POSTOPERATIVE [None]
